FAERS Safety Report 17860384 (Version 1)
Quarter: 2020Q2

REPORT INFORMATION
  Report Type: Spontaneous
  Country: CN (occurrence: CN)
  Receive Date: 20200604
  Receipt Date: 20200604
  Transmission Date: 20200714
  Serious: Yes (Other)
  Sender: FDA-Public Use
  Company Number: CN-BAYER-2020-104902

PATIENT
  Age: 43 Year
  Sex: Male

DRUGS (2)
  1. STIVARGA [Suspect]
     Active Substance: REGORAFENIB
     Dosage: 160 MG, QD
     Route: 048
     Dates: start: 201909
  2. STIVARGA [Suspect]
     Active Substance: REGORAFENIB
     Dosage: 120 MG, QD
     Route: 048
     Dates: end: 202003

REACTIONS (4)
  - Palmar-plantar erythrodysaesthesia syndrome [None]
  - Asthenia [None]
  - Jaundice cholestatic [Recovering/Resolving]
  - Protein urine present [None]

NARRATIVE: CASE EVENT DATE: 20200314
